FAERS Safety Report 12070682 (Version 2)
Quarter: 2016Q1

REPORT INFORMATION
  Report Type: Report from Study
  Country: JP (occurrence: JP)
  Receive Date: 20160211
  Receipt Date: 20160319
  Transmission Date: 20160526
  Serious: Yes (Death, Other)
  Sender: FDA-Public Use
  Company Number: JP-BRISTOL-MYERS SQUIBB COMPANY-BMS-2016-010593

PATIENT
  Age: 56 Year
  Sex: Female

DRUGS (5)
  1. METHYLPREDNISOLONE. [Concomitant]
     Active Substance: METHYLPREDNISOLONE
     Dosage: 20 MG, UNK
     Route: 042
     Dates: start: 20160206, end: 20160207
  2. METHYLPREDNISOLONE. [Concomitant]
     Active Substance: METHYLPREDNISOLONE
     Dosage: 10 MG, UNK
     Route: 042
     Dates: start: 20160208, end: 20160208
  3. NIVOLUMAB [Suspect]
     Active Substance: NIVOLUMAB
     Indication: NON-SMALL CELL LUNG CANCER
     Dosage: UNK
     Route: 041
     Dates: start: 20160128, end: 20160128
  4. METHYLPREDNISOLONE. [Concomitant]
     Active Substance: METHYLPREDNISOLONE
     Indication: RENAL IMPAIRMENT
     Dosage: 60 MG, UNK
     Route: 042
     Dates: start: 20160201, end: 20160204
  5. METHYLPREDNISOLONE. [Concomitant]
     Active Substance: METHYLPREDNISOLONE
     Dosage: 30 MG, UNK
     Route: 042
     Dates: start: 20160205, end: 20160205

REACTIONS (2)
  - Malignant neoplasm progression [Fatal]
  - Renal impairment [Recovered/Resolved]

NARRATIVE: CASE EVENT DATE: 20160201
